FAERS Safety Report 5371142-1 (Version None)
Quarter: 2007Q2

REPORT INFORMATION
  Report Type: 
  Country: None (occurrence: None)
  Receive Date: 20070626
  Receipt Date: 20070620
  Transmission Date: 20071010
  Serious: Yes (Other)
  Sender: FDA-Public Use
  Company Number: GR-MERCK-0706GRC00001

PATIENT
  Age: 36 Year
  Sex: Female

DRUGS (12)
  1. FOSAMAX PLUS D [Suspect]
     Indication: OSTEOPOROSIS
     Route: 048
     Dates: start: 20060801, end: 20070524
  2. FERROUS SULFATE [Concomitant]
     Indication: ANAEMIA
     Route: 048
     Dates: start: 20050101
  3. CALCIUM CARBONATE AND CHOLECALCIFEROL [Concomitant]
     Indication: OSTEOPOROSIS
     Route: 048
     Dates: start: 20050101
  4. CYANOCOBALAMIN AND PYRIDOXINE AND THIAMINE [Concomitant]
     Indication: MULTIPLE SCLEROSIS
     Route: 048
     Dates: start: 20050101
  5. OMEPRAZOLE [Concomitant]
     Indication: PROPHYLAXIS
     Route: 048
     Dates: start: 20050101
  6. FOLIC ACID [Concomitant]
     Indication: MULTIPLE SCLEROSIS
     Route: 048
     Dates: start: 20050101
  7. CLONAZEPAM [Concomitant]
     Indication: MENTAL DISORDER
     Route: 048
     Dates: start: 20050101, end: 20070524
  8. LEVOTHYROXINE SODIUM [Concomitant]
     Indication: HYPOTHYROIDISM
     Route: 048
     Dates: start: 20060101
  9. CLOPIDOGREL BISULFATE [Concomitant]
     Indication: DEEP VEIN THROMBOSIS
     Route: 048
     Dates: start: 20060101
  10. ACENOCOUMAROL [Concomitant]
     Indication: DEEP VEIN THROMBOSIS
     Route: 048
     Dates: start: 20060101
  11. EPOETIN ALFA [Concomitant]
     Indication: ANAEMIA
     Route: 051
     Dates: start: 20061101
  12. INTERFERON BETA-1A [Concomitant]
     Indication: MULTIPLE SCLEROSIS
     Route: 051
     Dates: start: 20061101

REACTIONS (2)
  - ABORTION SPONTANEOUS [None]
  - DRUG EXPOSURE DURING PREGNANCY [None]
